FAERS Safety Report 22346058 (Version 1)
Quarter: 2023Q2

REPORT INFORMATION
  Report Type: Spontaneous
  Country: US (occurrence: None)
  Receive Date: 20230519
  Receipt Date: 20230519
  Transmission Date: 20230722
  Serious: No
  Sender: FDA-Public Use
  Company Number: None

PATIENT
  Sex: Female

DRUGS (1)
  1. OPSUMIT [Suspect]
     Active Substance: MACITENTAN
     Indication: Pulmonary arterial hypertension
     Dosage: 10 MG DAILY PO?
     Route: 048
     Dates: start: 202305

REACTIONS (8)
  - Headache [None]
  - Hypotension [None]
  - Blood pressure systolic decreased [None]
  - Atrial fibrillation [None]
  - Hypervolaemia [None]
  - Weight increased [None]
  - Oedema [None]
  - Dyspnoea [None]
